FAERS Safety Report 7542620-1 (Version None)
Quarter: 2011Q2

REPORT INFORMATION
  Report Type: 
  Country: None (occurrence: None)
  Receive Date: 20110613
  Receipt Date: 20110606
  Transmission Date: 20111010
  Serious: Yes (Other)
  Sender: FDA-Public Use
  Company Number: PHHY2011GB48952

PATIENT
  Sex: Male

DRUGS (2)
  1. METFORMIN HCL [Suspect]
  2. GLICLAZIDE [Suspect]

REACTIONS (3)
  - BRONCHIECTASIS [None]
  - PULMONARY FIBROSIS [None]
  - IDIOPATHIC PULMONARY FIBROSIS [None]
